FAERS Safety Report 5386741-0 (Version None)
Quarter: 2007Q3

REPORT INFORMATION
  Report Type: 
  Country: None (occurrence: None)
  Receive Date: 20070713
  Receipt Date: 20070703
  Transmission Date: 20080115
  Serious: Yes (Other)
  Sender: FDA-Public Use
  Company Number: GB-BAUSCH-2007BL002231

PATIENT
  Age: 20 Year
  Sex: Male

DRUGS (2)
  1. PREDNISOLONE SODIUM PHOSPHATE [Suspect]
     Indication: JUVENILE ARTHRITIS
     Route: 048
  2. METHOTREXATE SODIUM [Suspect]
     Indication: JUVENILE ARTHRITIS

REACTIONS (1)
  - MYOCARDITIS [None]
